FAERS Safety Report 24560800 (Version 1)
Quarter: 2024Q4

REPORT INFORMATION
  Report Type: Spontaneous
  Country: US (occurrence: None)
  Receive Date: 20241028
  Receipt Date: 20241028
  Transmission Date: 20250115
  Serious: Yes (Hospitalization)
  Sender: Public
  Company Number: None

PATIENT
  Age: 30 Year
  Sex: Male

DRUGS (3)
  1. HYDROXYZINE PAMOATE [Suspect]
     Active Substance: HYDROXYZINE PAMOATE
     Dates: start: 20240610, end: 20240724
  2. PRAZOSIN HYDROCHLORIDE [Suspect]
     Active Substance: PRAZOSIN HYDROCHLORIDE
  3. MIRTAZAPINE [Suspect]
     Active Substance: MIRTAZAPINE

REACTIONS (2)
  - Bradycardia [None]
  - Overdose [None]

NARRATIVE: CASE EVENT DATE: 20240719
